FAERS Safety Report 24438453 (Version 12)
Quarter: 2025Q1

REPORT INFORMATION
  Report Type: Spontaneous
  Country: US (occurrence: US)
  Receive Date: 20241015
  Receipt Date: 20250304
  Transmission Date: 20250409
  Serious: No
  Sender: PFIZER
  Company Number: US-PFIZER INC-202400275763

PATIENT
  Age: 36 Year
  Sex: Male
  Weight: 62.9 kg

DRUGS (9)
  1. ADCETRIS [Suspect]
     Active Substance: BRENTUXIMAB VEDOTIN
  2. ADCETRIS [Suspect]
     Active Substance: BRENTUXIMAB VEDOTIN
     Dates: start: 20240926
  3. ADCETRIS [Suspect]
     Active Substance: BRENTUXIMAB VEDOTIN
     Dates: start: 20241113
  4. ADCETRIS [Suspect]
     Active Substance: BRENTUXIMAB VEDOTIN
  5. ADCETRIS [Suspect]
     Active Substance: BRENTUXIMAB VEDOTIN
  6. ADCETRIS [Suspect]
     Active Substance: BRENTUXIMAB VEDOTIN
  7. ADCETRIS [Suspect]
     Active Substance: BRENTUXIMAB VEDOTIN
  8. ADCETRIS [Suspect]
     Active Substance: BRENTUXIMAB VEDOTIN
  9. ADCETRIS [Suspect]
     Active Substance: BRENTUXIMAB VEDOTIN

REACTIONS (1)
  - Weight increased [Not Recovered/Not Resolved]
